FAERS Safety Report 6170825-3 (Version None)
Quarter: 2009Q2

REPORT INFORMATION
  Report Type: 
  Country: None (occurrence: None)
  Receive Date: 20090427
  Receipt Date: 20090415
  Transmission Date: 20091009
  Serious: Yes (Disabling)
  Sender: FDA-Public Use
  Company Number: 234187K09USA

PATIENT
  Age: 37 Year
  Sex: Male

DRUGS (5)
  1. REBIF [Suspect]
     Indication: MULTIPLE SCLEROSIS
     Dosage: 44 MCG, 3 IN 1 WEEKS, SUBCUTANEOUS
     Route: 058
     Dates: start: 20080610
  2. NAPROXEN [Concomitant]
  3. CELLCEPT [Concomitant]
  4. TOPAMAX [Concomitant]
  5. OXYBUTYNIN CHLORIDE [Concomitant]

REACTIONS (1)
  - DEAFNESS UNILATERAL [None]
